FAERS Safety Report 4515044-9 (Version None)
Quarter: 2004Q4

REPORT INFORMATION
  Report Type: 
  Country: None (occurrence: None)
  Receive Date: 20041129
  Receipt Date: 20041129
  Transmission Date: 20050328
  Serious: Yes (Other)
  Sender: FDA-Public Use
  Company Number: None

PATIENT
  Age: 27 Year
  Sex: Female
  Weight: 68.0396 kg

DRUGS (1)
  1. ORTHO EVRA [Suspect]
     Indication: CONTRACEPTION
     Dosage: 150MCG/20MCG 1 / WEEK TRANSDERMAL
     Route: 062
     Dates: start: 20040901, end: 20041125

REACTIONS (2)
  - APPLICATION SITE PRURITUS [None]
  - HYPERSENSITIVITY [None]
